FAERS Safety Report 12670996 (Version 1)
Quarter: 2016Q3

REPORT INFORMATION
  Report Type: Spontaneous
  Country: HK (occurrence: HK)
  Receive Date: 20160822
  Receipt Date: 20160822
  Transmission Date: 20161109
  Serious: Yes (Other)
  Sender: FDA-Public Use
  Company Number: HK-ACCORD-043292

PATIENT
  Age: 48 Year
  Sex: Female

DRUGS (1)
  1. TOPIRAMATE. [Suspect]
     Active Substance: TOPIRAMATE
     Indication: SEIZURE
     Dosage: 26 MONTHS AFTER VALPROATE; INITIAL DOSE WAS 25 MG TWICE A DAY THEN STEPPED UP TO 100 MG TWICE A DAY

REACTIONS (3)
  - Visual field defect [Recovering/Resolving]
  - Toxicity to various agents [Recovering/Resolving]
  - Retinopathy [Recovering/Resolving]
